FAERS Safety Report 25283981 (Version 4)
Quarter: 2025Q4

REPORT INFORMATION
  Report Type: Spontaneous
  Country: EU (occurrence: EU)
  Receive Date: 20250508
  Receipt Date: 20251027
  Transmission Date: 20260117
  Serious: Yes (Hospitalization)
  Sender: MYLAN
  Company Number: EU-MYLANLABS-2025M1038387

PATIENT
  Sex: Male

DRUGS (2)
  1. CLOZARIL [Suspect]
     Active Substance: CLOZAPINE
     Indication: Schizophrenia
     Dosage: UNK
     Dates: start: 20220211, end: 20250424
  2. CLOZARIL [Suspect]
     Active Substance: CLOZAPINE
     Dosage: UNK

REACTIONS (4)
  - Mental impairment [Unknown]
  - Hospitalisation [Unknown]
  - Differential white blood cell count abnormal [Unknown]
  - Treatment noncompliance [Unknown]

NARRATIVE: CASE EVENT DATE: 20250401
